FAERS Safety Report 6308376-5 (Version None)
Quarter: 2009Q3

REPORT INFORMATION
  Report Type: 
  Country: None (occurrence: None)
  Receive Date: 20090813
  Receipt Date: 20090805
  Transmission Date: 20100115
  Serious: Yes (Other)
  Sender: FDA-Public Use
  Company Number: UA-GENENTECH-288174

PATIENT
  Age: 58 Year
  Sex: Female

DRUGS (1)
  1. NUTROPIN [Suspect]
     Indication: GROWTH HORMONE DEFICIENCY
     Dosage: 0.5 MG, UNK
     Route: 065

REACTIONS (1)
  - BREAST CANCER [None]
